FAERS Safety Report 6283643-2 (Version None)
Quarter: 2009Q3

REPORT INFORMATION
  Report Type: 
  Country: None (occurrence: None)
  Receive Date: 20090724
  Receipt Date: 20090713
  Transmission Date: 20100115
  Serious: Yes (Hospitalization, Other)
  Sender: FDA-Public Use
  Company Number: PHHY2009MX28791

PATIENT
  Age: 91 Year
  Sex: Female

DRUGS (2)
  1. DIOVAN HCT [Suspect]
     Indication: HYPERTENSION
     Dosage: 1 TABLET (160/25 MG) PER DAY
     Route: 048
     Dates: start: 20060101, end: 20090706
  2. GLIBENCLAMIDE [Concomitant]
     Dosage: UNK
     Dates: end: 20090706

REACTIONS (4)
  - EMBOLISM [None]
  - HYPOGLYCAEMIA [None]
  - RENAL FAILURE [None]
  - URINARY TRACT INFECTION [None]
